FAERS Safety Report 7527514-X (Version None)
Quarter: 2011Q2

REPORT INFORMATION
  Report Type: 
  Country: None (occurrence: None)
  Receive Date: 20110512
  Receipt Date: 20110411
  Transmission Date: 20111010
  Serious: Yes (Hospitalization)
  Sender: FDA-Public Use
  Company Number: 1000018595

PATIENT
  Age: 41 Year
  Sex: Female

DRUGS (22)
  1. CARAFATE (SUCRALFATE) (SUCRALFATE) [Concomitant]
  2. OMEPRAZOLE [Concomitant]
  3. TOPAMAX (TOPIRAMATE) (TOPIRAMATE) [Concomitant]
  4. SOMA (CARISOPRODOL) (CARISOPRODOL) [Concomitant]
  5. ASPIRIN [Concomitant]
  6. LANTUS (INSULIN GLARGINE) (INSULIN GLARGINE) [Concomitant]
  7. HUMULIN R (INSULIN HUMAN) (INSULIN HUMAN) [Concomitant]
  8. ZESTRIL [Concomitant]
  9. POLYETHYLENE GLYCOL (POLYETHYLENE GLYCOL) (POLYETHYLENE GLYCOL) [Concomitant]
  10. BUTALBITAL (BUTALBITAL) (BUTALBITAL) [Concomitant]
  11. PHENERGAN (PROMETHAZINE) (PROMETHAZINE) [Concomitant]
  12. GLUCAGON (GLUCAGON) (GLUCAGON) [Concomitant]
  13. VITAMIN E (VITAMIN E) (VITAMIN E) [Concomitant]
  14. ALBUTEROL (ALBUTEROL) (ALBUTEROL) [Concomitant]
  15. LASIX [Concomitant]
  16. MULTIVITAMINS (MULTIVITAMINS) (MULTIVITAMINS) [Concomitant]
  17. TRAMADOL HYDROCHLORIDE [Suspect]
     Indication: FIBROMYALGIA
     Dosage: 200 MG (50 MG, 4 IN 1 D), ORAL, 200 MG (50 MG, 4 IN 1 D)
     Route: 048
     Dates: end: 20110108
  18. TRAMADOL HYDROCHLORIDE [Suspect]
     Indication: FIBROMYALGIA
     Dosage: 200 MG (50 MG, 4 IN 1 D), ORAL, 200 MG (50 MG, 4 IN 1 D)
     Route: 048
     Dates: start: 20110110
  19. SAVELLA [Suspect]
     Indication: FIBROMYALGIA
     Dosage: 12.5 MG (12.5 MG, 1 IN 1 D), ORAL
     Route: 048
     Dates: start: 20110107, end: 20110107
  20. SOYBEAN (SOYBEAN) (SOYBEAN) [Concomitant]
  21. CALTRATE DICALCIUM CARBONATE, VITAMIN D (CALCIUM CARBONATE, VITAMIN D) [Concomitant]
  22. GARLIC (GARLIC) (GARLIC) [Concomitant]

REACTIONS (2)
  - HYPOGLYCAEMIA [None]
  - SEROTONIN SYNDROME [None]
